FAERS Safety Report 12986453 (Version 2)
Quarter: 2016Q4

REPORT INFORMATION
  Report Type: Spontaneous
  Country: JP (occurrence: JP)
  Receive Date: 20161130
  Receipt Date: 20161216
  Transmission Date: 20170207
  Serious: Yes (Hospitalization, Other)
  Sender: FDA-Public Use
  Company Number: JP-PFIZER INC-2016494591

PATIENT
  Age: 83 Year
  Sex: Female
  Weight: 36 kg

DRUGS (8)
  1. LIPIDIL [Concomitant]
     Active Substance: FENOFIBRATE
     Dosage: 80 MG, 1X/DAY (IN THE MORNING)
     Route: 048
  2. RHEUMATREX [Suspect]
     Active Substance: METHOTREXATE SODIUM
     Indication: RHEUMATOID ARTHRITIS
     Dosage: 4 MG, WEEKLY
     Route: 048
     Dates: start: 20120418, end: 201610
  3. DOGMATYL [Concomitant]
     Active Substance: SULPIRIDE
     Dosage: 50 MG, 2X/DAY (IN THE MORNING AND EVENING)
     Route: 048
  4. ARTIST [Concomitant]
     Active Substance: CARVEDILOL
     Dosage: 5 MG, 2X/DAY (IN THE MORNING AND EVENING)
     Route: 048
  5. STAYBLA [Concomitant]
     Active Substance: IMIDAFENACIN
     Dosage: 0.1 MG, 2X/DAY (IN THE MORNING AND EVENING)
     Route: 048
  6. PHENLASE [Concomitant]
     Dosage: 1 DF, 2X/DAY (IN THE MORNING AND EVENING)
     Route: 048
  7. FUROSEMIDE. [Concomitant]
     Active Substance: FUROSEMIDE
     Dosage: 20 MG, 1X/DAY (IN THE MORNING(
     Route: 048
  8. REBAMIPIDE [Concomitant]
     Active Substance: REBAMIPIDE
     Dosage: 100 MG, 2X/DAY (IN THE MORNING AND EVENING)
     Route: 048

REACTIONS (3)
  - Bone marrow failure [Recovered/Resolved]
  - Fall [Recovering/Resolving]
  - Femur fracture [Unknown]

NARRATIVE: CASE EVENT DATE: 20161017
